FAERS Safety Report 6115557-2 (Version None)
Quarter: 2009Q1

REPORT INFORMATION
  Report Type: 
  Country: None (occurrence: None)
  Receive Date: 20090313
  Receipt Date: 20090303
  Transmission Date: 20090719
  Serious: Yes (Hospitalization, Other)
  Sender: FDA-Public Use
  Company Number: PHHY2009BR04278

PATIENT
  Age: 56 Year
  Sex: Male
  Weight: 70 kg

DRUGS (4)
  1. ENABLEX [Suspect]
     Indication: MICTURITION DISORDER
     Dosage: 1 TABLET PER DAY
     Route: 048
     Dates: start: 20090106, end: 20090204
  2. GARDENAL [Concomitant]
     Indication: CONVULSION
     Dosage: 1 TAB/DAY
     Route: 048
  3. LEXAPRO [Concomitant]
     Indication: DEPRESSION
     Dosage: 1 AND HALF TABLET PER DAY
     Route: 048
     Dates: start: 20070601
  4. HIDANTAL [Concomitant]
     Indication: CONVULSION
     Dosage: 2 TABLET AND HALF PER DAY
     Route: 048
     Dates: start: 19850101

REACTIONS (10)
  - ABNORMAL BEHAVIOUR [None]
  - BRAIN OEDEMA [None]
  - COGNITIVE DISORDER [None]
  - CONFUSIONAL STATE [None]
  - DECREASED INTEREST [None]
  - FALL [None]
  - FEMUR FRACTURE [None]
  - FRACTURE TREATMENT [None]
  - SPEECH DISORDER [None]
  - WEIGHT DECREASED [None]
